FAERS Safety Report 15701118 (Version 3)
Quarter: 2019Q2

REPORT INFORMATION
  Report Type: Spontaneous
  Country: JP (occurrence: JP)
  Receive Date: 20181207
  Receipt Date: 20190627
  Transmission Date: 20190711
  Serious: Yes (Life-Threatening, Hospitalization)
  Sender: FDA-Public Use
  Company Number: JP-ELI_LILLY_AND_COMPANY-JP201812001879

PATIENT
  Age: 72 Year
  Sex: Female
  Weight: 37 kg

DRUGS (4)
  1. ERBITUX [Suspect]
     Active Substance: CETUXIMAB
     Dosage: 250 MG/M2, UNKNOWN
     Route: 041
     Dates: start: 2018, end: 20181121
  2. CISPLATIN. [Suspect]
     Active Substance: CISPLATIN
     Indication: GINGIVAL CANCER
     Dosage: UNK UNK, UNKNOWN
     Route: 041
     Dates: start: 20181114, end: 20181128
  3. ERBITUX [Suspect]
     Active Substance: CETUXIMAB
     Indication: GINGIVAL CANCER
     Dosage: 400 MG/M2, UNKNOWN
     Route: 041
     Dates: start: 20181114
  4. 5 FU [Suspect]
     Active Substance: FLUOROURACIL
     Indication: GINGIVAL CANCER
     Dosage: 1000 MG/M2, UNKNOWN
     Route: 041
     Dates: start: 20181114, end: 20181128

REACTIONS (2)
  - Febrile neutropenia [Recovering/Resolving]
  - Sepsis [Recovering/Resolving]

NARRATIVE: CASE EVENT DATE: 20181125
